FAERS Safety Report 15310368 (Version 2)
Quarter: 2018Q3

REPORT INFORMATION
  Report Type: Spontaneous
  Country: US (occurrence: US)
  Receive Date: 20180823
  Receipt Date: 20180913
  Transmission Date: 20181010
  Serious: No
  Sender: FDA-Public Use
  Company Number: US-VERTEX PHARMACEUTICALS-2018-005931

PATIENT
  Age: 58 Year
  Sex: Female

DRUGS (16)
  1. HYDROCORT                          /00028602/ [Concomitant]
  2. INTRAROSA [Concomitant]
     Active Substance: PRASTERONE
  3. CIPROFLOXACIN. [Concomitant]
     Active Substance: CIPROFLOXACIN
  4. PREDNISONE. [Concomitant]
     Active Substance: PREDNISONE
  5. SUMATRIPTAN. [Concomitant]
     Active Substance: SUMATRIPTAN
  6. KALYDECO [Suspect]
     Active Substance: IVACAFTOR
     Indication: CYSTIC FIBROSIS
     Dosage: 150 MG, BID
     Route: 048
     Dates: start: 20180725
  7. TOBRAMYCIN. [Concomitant]
     Active Substance: TOBRAMYCIN
  8. CLOBETASOL [Concomitant]
     Active Substance: CLOBETASOL
  9. NYSTATIN. [Concomitant]
     Active Substance: NYSTATIN
  10. WAL FEX [Concomitant]
     Active Substance: FEXOFENADINE HYDROCHLORIDE
  11. VENTOLIN HFA [Concomitant]
     Active Substance: ALBUTEROL SULFATE
  12. SODIUM CHLORIDE. [Concomitant]
     Active Substance: SODIUM CHLORIDE
  13. PULMOZYME [Concomitant]
     Active Substance: DORNASE ALFA
  14. BUDESONIDE. [Concomitant]
     Active Substance: BUDESONIDE
  15. LEVOFLOXACIN. [Concomitant]
     Active Substance: LEVOFLOXACIN
  16. FLUCONAZOLE. [Concomitant]
     Active Substance: FLUCONAZOLE

REACTIONS (3)
  - Nausea [Not Recovered/Not Resolved]
  - Headache [Unknown]
  - Chromaturia [Unknown]

NARRATIVE: CASE EVENT DATE: 201807
